FAERS Safety Report 18325090 (Version 1)
Quarter: 2020Q3

REPORT INFORMATION
  Report Type: Spontaneous
  Country: IR (occurrence: IR)
  Receive Date: 20200929
  Receipt Date: 20200929
  Transmission Date: 20201103
  Serious: Yes (Other)
  Sender: FDA-Public Use
  Company Number: IR-LUPIN PHARMACEUTICALS INC.-2020-06502

PATIENT
  Age: 64 Year
  Sex: Female

DRUGS (4)
  1. LOPINAVIR/RITONAVIR [Concomitant]
     Active Substance: LOPINAVIR\RITONAVIR
     Indication: COVID-19
     Dosage: 400/100 MG, QD (GAVAGE)
     Route: 065
     Dates: start: 2020
  2. HYDROXYCHLOROQUINE [Suspect]
     Active Substance: HYDROXYCHLOROQUINE
     Indication: COVID-19
     Dosage: 200 MILLIGRAM, BID (GAVAGE)
     Route: 065
     Dates: start: 2020
  3. CLINDAMYCIN. [Concomitant]
     Active Substance: CLINDAMYCIN
     Indication: COVID-19
     Dosage: UNK
     Route: 042
     Dates: start: 2020
  4. CEFTRIAXONE. [Suspect]
     Active Substance: CEFTRIAXONE
     Indication: COVID-19
     Dosage: UNK
     Route: 042
     Dates: start: 2020

REACTIONS (1)
  - Off label use [Unknown]

NARRATIVE: CASE EVENT DATE: 2020
